FAERS Safety Report 24190751 (Version 1)
Quarter: 2024Q3

REPORT INFORMATION
  Report Type: Spontaneous
  Country: US (occurrence: US)
  Receive Date: 20240808
  Receipt Date: 20240808
  Transmission Date: 20241017
  Serious: No
  Sender: PFIZER
  Company Number: US-PFIZER INC-202400232215

PATIENT
  Sex: Female

DRUGS (1)
  1. ELREXFIO [Suspect]
     Active Substance: ELRANATAMAB-BCMM
     Dosage: UNK

REACTIONS (3)
  - Skin exfoliation [Recovering/Resolving]
  - Nail discolouration [Recovering/Resolving]
  - Nail deformation [Recovering/Resolving]

NARRATIVE: CASE EVENT DATE: 20240701
